FAERS Safety Report 7812696-2 (Version None)
Quarter: 2011Q4

REPORT INFORMATION
  Report Type: 
  Country: None (occurrence: None)
  Receive Date: 20111013
  Receipt Date: 20110929
  Transmission Date: 20120403
  Serious: Yes (Other)
  Sender: FDA-Public Use
  Company Number: US-ELI_LILLY_AND_COMPANY-US201109008699

PATIENT
  Sex: Male

DRUGS (1)
  1. CYMBALTA [Suspect]
     Indication: ANXIETY
     Dosage: UNK
     Dates: start: 20060101

REACTIONS (7)
  - GALLBLADDER OPERATION [None]
  - EOSINOPHIL COUNT INCREASED [None]
  - MEAN CELL VOLUME ABNORMAL [None]
  - MONOCYTE COUNT INCREASED [None]
  - MEAN CELL HAEMOGLOBIN INCREASED [None]
  - HEPATIC ENZYME INCREASED [None]
  - APPENDICECTOMY [None]
